FAERS Safety Report 21041099 (Version 1)
Quarter: 2022Q3

REPORT INFORMATION
  Report Type: Spontaneous
  Country: CZ (occurrence: CZ)
  Receive Date: 20220705
  Receipt Date: 20220705
  Transmission Date: 20221026
  Serious: Yes (Hospitalization, Other)
  Sender: FDA-Public Use
  Company Number: CZ-MLMSERVICE-20220207-3360687-4

PATIENT
  Age: 36 Year
  Sex: Male

DRUGS (2)
  1. OLANZAPINE [Suspect]
     Active Substance: OLANZAPINE
     Indication: Schizophrenia
     Dosage: 10 MILLIGRAM, ONCE A DAY
     Route: 065
  2. OLANZAPINE [Suspect]
     Active Substance: OLANZAPINE
     Dosage: 20 MILLIGRAM, ONCE A DAY
     Route: 065

REACTIONS (4)
  - Suicidal ideation [Unknown]
  - Sedation complication [Unknown]
  - Delusion [Unknown]
  - Depression [Unknown]
